FAERS Safety Report 5749532-4 (Version None)
Quarter: 2008Q2

REPORT INFORMATION
  Report Type: 
  Country: None (occurrence: None)
  Receive Date: 20080527
  Receipt Date: 20080523
  Transmission Date: 20081010
  Serious: Yes (Life-Threatening)
  Sender: FDA-Public Use
  Company Number: B0522012A

PATIENT
  Age: 32 Year
  Sex: Female

DRUGS (6)
  1. AUGMENTIN '125' [Suspect]
     Dates: start: 20070330, end: 20070409
  2. ZAPONEX [Suspect]
     Indication: SCHIZOPHRENIA
     Dosage: 225MG PER DAY
     Route: 048
     Dates: start: 20070411
  3. LORAZEPAM [Concomitant]
  4. PROCYCLIDINE HYDROCHLORIDE 2MG TAB [Concomitant]
  5. HALOPERIDOL [Concomitant]
  6. CO-DYDRAMOL [Concomitant]

REACTIONS (1)
  - ABORTION SPONTANEOUS [None]
